FAERS Safety Report 4750066-4 (Version None)
Quarter: 2005Q3

REPORT INFORMATION
  Report Type: 
  Country: None (occurrence: None)
  Receive Date: 20050822
  Receipt Date: 20050601
  Transmission Date: 20060218
  Serious: Yes (Other)
  Sender: FDA-Public Use
  Company Number: S05-CAN-02845-01

PATIENT
  Age: 28 Year
  Sex: Female

DRUGS (1)
  1. CITALOPRAM HYDROBROMIDE [Suspect]
     Dosage: 1400 MG ONCE PO
     Route: 048

REACTIONS (6)
  - ELECTROCARDIOGRAM ABNORMAL [None]
  - EYE DISORDER [None]
  - MUSCLE TWITCHING [None]
  - OVERDOSE [None]
  - SUICIDE ATTEMPT [None]
  - TREMOR [None]
